FAERS Safety Report 26058278 (Version 3)
Quarter: 2025Q4

REPORT INFORMATION
  Report Type: Report from Study
  Country: US (occurrence: US)
  Receive Date: 20251118
  Receipt Date: 20251221
  Transmission Date: 20260117
  Serious: No
  Sender: IPSEN BIOPHARMACEUTICALS, INC.
  Company Number: US-IPSEN Group, Research and Development-2025-27952

PATIENT
  Age: 33 Year
  Sex: Female

DRUGS (1)
  1. SOHONOS [Suspect]
     Active Substance: PALOVAROTENE
     Indication: Fibrodysplasia ossificans progressiva
     Route: 048
     Dates: start: 20251107

REACTIONS (5)
  - Condition aggravated [Unknown]
  - Myalgia [Not Recovered/Not Resolved]
  - Illness [Unknown]
  - Night blindness [Unknown]
  - Infected bite [Unknown]

NARRATIVE: CASE EVENT DATE: 20251101
